FAERS Safety Report 18548341 (Version 4)
Quarter: 2021Q1

REPORT INFORMATION
  Report Type: Report from Study
  Country: IT (occurrence: CH)
  Receive Date: 20201125
  Receipt Date: 20210326
  Transmission Date: 20210419
  Serious: Yes (Other)
  Sender: FDA-Public Use
  Company Number: IT-GILEAD-2020-0505569

PATIENT
  Age: 68 Year
  Sex: Male
  Weight: 74 kg

DRUGS (20)
  1. CALCIUM D3 [Concomitant]
     Active Substance: CALCIUM\CHOLECALCIFEROL
     Dosage: 1000/800,MG,DAILY
     Route: 048
     Dates: start: 20191121
  2. BACTRIM [Concomitant]
     Active Substance: SULFAMETHOXAZOLE\TRIMETHOPRIM
     Dosage: 800/160,MG,OTHER
     Route: 048
     Dates: start: 20190121
  3. FLUDARABINE [Suspect]
     Active Substance: FLUDARABINE PHOSPHATE
     Indication: BONE MARROW CONDITIONING REGIMEN
     Dosage: 57
     Route: 042
     Dates: start: 20191113, end: 20191113
  4. FLUDARABINE [Suspect]
     Active Substance: FLUDARABINE PHOSPHATE
     Dosage: 57
     Route: 042
     Dates: start: 20191114, end: 20191114
  5. EXCIPIAL [PARAFFIN, LIQUID;PRUNUS DULCIS OIL] [Concomitant]
     Dosage: ,OTHER,DAILY
     Route: 061
     Dates: start: 20191113
  6. CYCLOPHOSPHAMIDE. [Suspect]
     Active Substance: CYCLOPHOSPHAMIDE
     Indication: BONE MARROW CONDITIONING REGIMEN
     Dosage: 945
     Route: 042
     Dates: start: 20191113, end: 20191113
  7. AXICABTAGENE CILOLEUCEL [Suspect]
     Active Substance: AXICABTAGENE CILOLEUCEL
     Indication: HIGH GRADE B-CELL LYMPHOMA BURKITT-LIKE LYMPHOMA
     Dosage: 68
     Route: 042
     Dates: start: 20191118, end: 20191118
  8. CYCLOPHOSPHAMIDE. [Suspect]
     Active Substance: CYCLOPHOSPHAMIDE
     Dosage: 945
     Route: 042
     Dates: start: 20191114, end: 20191114
  9. MESNA. [Suspect]
     Active Substance: MESNA
     Dosage: 200
     Route: 042
     Dates: start: 20191113, end: 20191113
  10. MESNA. [Suspect]
     Active Substance: MESNA
     Dosage: 200
     Route: 042
     Dates: start: 20191114, end: 20191114
  11. MESNA. [Suspect]
     Active Substance: MESNA
     Dosage: 945
     Route: 042
     Dates: start: 20191115, end: 20191116
  12. VITAMIN D3 [Concomitant]
     Active Substance: CHOLECALCIFEROL
     Dosage: 10,OTHER,DAILY
     Route: 048
     Dates: start: 20191129
  13. FLUCONAZOL [Concomitant]
     Active Substance: FLUCONAZOLE
     Dosage: 400,MG,OTHER
     Route: 048
     Dates: start: 20191129
  14. VALACICLOVIR [Concomitant]
     Active Substance: VALACYCLOVIR HYDROCHLORIDE
     Dosage: 500,MG,TWICE DAILY
     Route: 048
     Dates: start: 20200213
  15. MESNA. [Suspect]
     Active Substance: MESNA
     Indication: PROPHYLAXIS
     Dosage: 945
     Route: 042
     Dates: start: 20191113, end: 20191114
  16. FOLINIC ACID [Concomitant]
     Active Substance: LEUCOVORIN
     Dosage: 5,MG,DAILY
     Route: 048
     Dates: start: 20191129
  17. FLUDARABINE [Suspect]
     Active Substance: FLUDARABINE PHOSPHATE
     Dosage: 57
     Route: 042
     Dates: start: 20191115, end: 20191115
  18. CYCLOPHOSPHAMIDE. [Suspect]
     Active Substance: CYCLOPHOSPHAMIDE
     Dosage: 945
     Route: 042
     Dates: start: 20191115, end: 20191115
  19. MESNA. [Suspect]
     Active Substance: MESNA
     Dosage: 945
     Route: 042
     Dates: start: 20191114, end: 20191115
  20. MESNA. [Suspect]
     Active Substance: MESNA
     Dosage: 200
     Route: 042
     Dates: start: 20191115, end: 20191115

REACTIONS (1)
  - Sarcoidosis [Not Recovered/Not Resolved]

NARRATIVE: CASE EVENT DATE: 20200630
